FAERS Safety Report 5212271-2 (Version None)
Quarter: 2006Q4

REPORT INFORMATION
  Report Type: 
  Country: None (occurrence: None)
  Receive Date: 20061130
  Receipt Date: 20061122
  Transmission Date: 20070319
  Serious: Yes (Disabling)
  Sender: FDA-Public Use
  Company Number: WAES 0511USA03787

PATIENT
  Age: 78 Year
  Sex: Female
  Weight: 56.246 kg

DRUGS (5)
  1. FOSAMAX [Suspect]
     Indication: OSTEOPENIA
     Dosage: 70 MG/WKY/PO
     Route: 048
     Dates: start: 20050429, end: 20050907
  2. ANTIVERT [Concomitant]
  3. EVISTA [Concomitant]
  4. ASPIRIN [Concomitant]
  5. CALCIUM (UNSEPCIFIED) (+) VIATAMIN [Concomitant]

REACTIONS (3)
  - ARTHRALGIA [None]
  - MYALGIA [None]
  - PAIN IN EXTREMITY [None]
